FAERS Safety Report 8129780-9 (Version None)
Quarter: 2012Q1

REPORT INFORMATION
  Report Type: 
  Country: None (occurrence: None)
  Receive Date: 20120210
  Receipt Date: 20120210
  Transmission Date: 20120608
  Serious: No
  Sender: FDA-Public Use
  Company Number: None

PATIENT
  Sex: Male
  Weight: 77.11 kg

DRUGS (1)
  1. PROPECIA [Suspect]
     Indication: ALOPECIA
     Dosage: 1 PILL
     Route: 048
     Dates: start: 19990101, end: 20111229

REACTIONS (11)
  - DEPRESSION [None]
  - AMNESIA [None]
  - URINARY RETENTION [None]
  - ORGANIC ERECTILE DYSFUNCTION [None]
  - EJACULATION FAILURE [None]
  - LOSS OF LIBIDO [None]
  - TESTICULAR PAIN [None]
  - EMOTIONAL DISORDER [None]
  - VISION BLURRED [None]
  - APATHY [None]
  - EJACULATION DISORDER [None]
